FAERS Safety Report 25441537 (Version 2)
Quarter: 2025Q2

REPORT INFORMATION
  Report Type: Spontaneous
  Country: LT (occurrence: None)
  Receive Date: 20250616
  Receipt Date: 20250618
  Transmission Date: 20250716
  Serious: Yes (Other)
  Sender: INCYTE
  Company Number: LT-002147023-NVSC2025LT091224

PATIENT
  Age: 67 Year

DRUGS (1)
  1. RUXOLITINIB [Suspect]
     Active Substance: RUXOLITINIB
     Indication: Myelofibrosis
     Dosage: 15 MG, QD (5 MG X 3 TIMES PER DAY)

REACTIONS (5)
  - Arthralgia [Recovering/Resolving]
  - Spinal fracture [Recovering/Resolving]
  - Arthritis [Recovering/Resolving]
  - Fracture [Recovering/Resolving]
  - Tendonitis [Recovering/Resolving]
